FAERS Safety Report 26042012 (Version 2)
Quarter: 2025Q4

REPORT INFORMATION
  Report Type: Spontaneous
  Country: EU (occurrence: EU)
  Receive Date: 20251113
  Receipt Date: 20251118
  Transmission Date: 20260118
  Serious: Yes (Other)
  Sender: PFIZER
  Company Number: EU-SAMSUNG BIOEPIS-SB-2025-36819

PATIENT
  Age: 44 Year
  Sex: Male

DRUGS (2)
  1. BEVACIZUMAB [Suspect]
     Active Substance: BEVACIZUMAB
     Indication: Hepatocellular carcinoma
     Dosage: UNK UNK, CYCLIC
  2. ATEZOLIZUMAB [Suspect]
     Active Substance: ATEZOLIZUMAB
     Indication: Hepatocellular carcinoma
     Dosage: UNK, CYCLIC

REACTIONS (10)
  - Hepatic cirrhosis [Unknown]
  - Jaundice cholestatic [Unknown]
  - Transplant rejection [Unknown]
  - Cholangitis acute [Unknown]
  - Bile duct stenosis [Unknown]
  - Impaired healing [Recovering/Resolving]
  - Incision site discharge [Unknown]
  - Wound evisceration [Recovered/Resolved]
  - Drug effective for unapproved indication [Unknown]
  - Off label use [Unknown]
